FAERS Safety Report 7977346-3 (Version None)
Quarter: 2011Q4

REPORT INFORMATION
  Report Type: 
  Country: None (occurrence: None)
  Receive Date: 20111213
  Receipt Date: 20100113
  Transmission Date: 20120403
  Serious: Yes (Hospitalization, Other)
  Sender: FDA-Public Use
  Company Number: PHHY2010TW12859

PATIENT
  Sex: Male

DRUGS (8)
  1. BLOOD TRANSFUSION, AUXILIARY PRODUCTS [Concomitant]
  2. GLEEVEC [Suspect]
     Dosage: DOSE OF 2 PILLS IN THE MORNING AND EVENING
  3. SUTENT [Suspect]
     Indication: GASTROINTESTINAL STROMAL TUMOUR
     Dosage: 04 TABLETS
     Dates: start: 20090701
  4. SUTENT [Suspect]
     Dosage: 4 TABLETS
     Dates: start: 20090101
  5. SUTENT [Suspect]
     Dosage: 4 TABLETS
     Dates: start: 20100101, end: 20100921
  6. GLEEVEC [Suspect]
     Indication: GASTROINTESTINAL STROMAL TUMOUR
     Dates: start: 20090701, end: 20091201
  7. GLEEVEC [Suspect]
     Dosage: 600 MG, UNK
     Dates: end: 20100101
  8. GLEEVEC [Suspect]
     Dosage: 3 PILLS IN THE MORNING AND EVENING

REACTIONS (9)
  - LOSS OF CONSCIOUSNESS [None]
  - DIZZINESS [None]
  - FALL [None]
  - GASTRIC HAEMORRHAGE [None]
  - METASTATIC NEOPLASM [None]
  - WHITE BLOOD CELL COUNT DECREASED [None]
  - WHITE BLOOD CELL COUNT INCREASED [None]
  - ANAEMIA [None]
  - DISCOMFORT [None]
